FAERS Safety Report 4699152-8 (Version None)
Quarter: 2005Q2

REPORT INFORMATION
  Report Type: 
  Country: None (occurrence: None)
  Receive Date: 20050623
  Receipt Date: 20050623
  Transmission Date: 20051028
  Serious: Yes (Life-Threatening, Hospitalization)
  Sender: FDA-Public Use
  Company Number: None

PATIENT
  Age: 42 Year
  Sex: Female
  Weight: 78 kg

DRUGS (20)
  1. RITUXIMAB [Suspect]
     Indication: GRAFT VERSUS HOST DISEASE
     Dosage: 375 MG/M2 1/WEEK X 4 IV
     Route: 042
     Dates: start: 20041207, end: 20050301
  2. OS-CAL [Concomitant]
  3. FOLIC ACID [Concomitant]
  4. ACYCLOVIR [Concomitant]
  5. MAGNESIUM [Concomitant]
  6. MULTI-VITAMIN [Concomitant]
  7. ACTIGALL [Concomitant]
  8. BACTRIM [Concomitant]
  9. PROZAC [Concomitant]
  10. PROTONIX [Concomitant]
  11. RHINOCORT [Concomitant]
  12. CELLCEPT [Concomitant]
  13. ZYRTEC [Concomitant]
  14. LIPITOR [Concomitant]
  15. FOSAMAX [Concomitant]
  16. PREDNISONE [Concomitant]
  17. AUGMENTIN [Concomitant]
  18. ATIVAN [Concomitant]
  19. COMPAZINE [Concomitant]
  20. ZOFRAN [Concomitant]

REACTIONS (6)
  - ASPIRATION [None]
  - NAUSEA [None]
  - PNEUMONIA VIRAL [None]
  - RESPIRATORY FAILURE [None]
  - SINUSITIS [None]
  - VOMITING [None]
